FAERS Safety Report 5917293-1 (Version None)
Quarter: 2008Q4

REPORT INFORMATION
  Report Type: 
  Country: None (occurrence: None)
  Receive Date: 20081014
  Receipt Date: 20081002
  Transmission Date: 20090506
  Serious: Yes (Disabling, Other)
  Sender: FDA-Public Use
  Company Number: FR-WYE-H04948408

PATIENT
  Sex: Female

DRUGS (9)
  1. INIPOMP [Suspect]
     Indication: GASTROOESOPHAGEAL REFLUX DISEASE
     Route: 048
     Dates: end: 20080331
  2. INIPOMP [Suspect]
     Route: 048
     Dates: start: 20080526, end: 20080101
  3. INIPOMP [Suspect]
     Route: 048
     Dates: start: 20080601
  4. MOPRAL [Suspect]
     Route: 048
  5. FLUDEX [Concomitant]
     Indication: HYPERTENSION
     Route: 048
  6. SERETIDE [Concomitant]
     Indication: CHRONIC OBSTRUCTIVE PULMONARY DISEASE
  7. MUCOMYST [Concomitant]
     Indication: CHRONIC OBSTRUCTIVE PULMONARY DISEASE
     Route: 048
  8. ACETAMINOPHEN [Concomitant]
     Indication: NECK PAIN
     Dosage: UNKNOWN
     Route: 048
  9. LEXOMIL [Concomitant]
     Indication: ANXIETY
     Dosage: UNKNOWN
     Route: 048

REACTIONS (1)
  - HYPONATRAEMIA [None]
